FAERS Safety Report 23661113 (Version 1)
Quarter: 2024Q1

REPORT INFORMATION
  Report Type: Spontaneous
  Country: US (occurrence: US)
  Receive Date: 20240322
  Receipt Date: 20240322
  Transmission Date: 20240409
  Serious: Yes (Other)
  Sender: FDA-Public Use
  Company Number: US-OPELLA-2024OHG008536

PATIENT
  Age: 57 Year
  Sex: Male

DRUGS (10)
  1. GOLD BOND MEDICATED ORIGINAL STRENGTH BODY [Suspect]
     Active Substance: MENTHOL
     Indication: Product used for unknown indication
  2. ALBUTEROL [Concomitant]
     Active Substance: ALBUTEROL
     Indication: Product used for unknown indication
     Dosage: INHALE 2 PUFFS EVERY 4 (FOUR) HOURS AS NEEDED,
     Route: 055
     Dates: start: 20230426
  3. BUMETANIDE [Concomitant]
     Active Substance: BUMETANIDE
     Indication: Product used for unknown indication
     Dosage: TAKE 1 MG BY MOUTH 2 (TWO) TIMES A DAY
     Route: 048
  4. VOLTAREN [Concomitant]
     Active Substance: DICLOFENAC SODIUM
     Indication: Product used for unknown indication
     Dosage: APPLY 1 APPLICATION TOPICALLY 4 (FOUR) TIMES A DAY
     Route: 061
     Dates: start: 20230426
  5. FOLVITE [Concomitant]
     Active Substance: FOLIC ACID
     Indication: Product used for unknown indication
     Dosage: TAKE 1,000 MCG BY MOUTH DAILY.
     Route: 048
     Dates: start: 20230426
  6. MUCINEX [Concomitant]
     Active Substance: GUAIFENESIN
     Indication: Cough
     Dosage: TAKE 1,200 MG BY MOUTH 2 (TWO) TIMES A DAY AS NEEDED FOR COUGH
     Route: 048
     Dates: start: 20230426
  7. NICODERM CQ [Concomitant]
     Active Substance: NICOTINE
     Indication: Product used for unknown indication
     Dosage: PLACE 1 PATCH ON THE SKIN DAILY
     Route: 062
     Dates: start: 20230331
  8. NICORETTE [Concomitant]
     Active Substance: NICOTINE
     Indication: Smoking cessation therapy
     Dosage: CHEW 4 MG AS NEEDED FOR SMOKING CESSATION.
     Route: 048
     Dates: start: 20230331
  9. PRILOSEC [Concomitant]
     Active Substance: OMEPRAZOLE MAGNESIUM
     Indication: Product used for unknown indication
     Dosage: TAKE 20 MG BY MOUTH DAILY AS NEEDED
     Route: 048
  10. PERCOCET [Concomitant]
     Active Substance: ACETAMINOPHEN\OXYCODONE HYDROCHLORIDE
     Indication: Product used for unknown indication
     Dosage: TAKE 1 TABLET BY MOUTH 4 (FOUR) TIMES A DAY AS NEEDED,
     Route: 048
     Dates: start: 20230426

REACTIONS (11)
  - Peritoneal mesothelioma malignant [Unknown]
  - Exposure to chemical pollution [Unknown]
  - Asthenia [Unknown]
  - Abdominal distension [Unknown]
  - Abdominal pain [Unknown]
  - Fatigue [Unknown]
  - Oedema [Unknown]
  - Back pain [Unknown]
  - Arthralgia [Unknown]
  - Weight decreased [Unknown]
  - Decreased appetite [Unknown]
